FAERS Safety Report 7269472-1 (Version None)
Quarter: 2011Q1

REPORT INFORMATION
  Report Type: 
  Country: None (occurrence: None)
  Receive Date: 20110202
  Receipt Date: 20110127
  Transmission Date: 20110831
  Serious: No
  Sender: FDA-Public Use
  Company Number: US-JNJFOC-20110200317

PATIENT

DRUGS (3)
  1. INVEGA SUSTENNA [Suspect]
     Route: 030
  2. INVEGA SUSTENNA [Suspect]
     Indication: ILL-DEFINED DISORDER
     Route: 030
  3. INVEGA SUSTENNA [Suspect]
     Route: 030

REACTIONS (3)
  - INFLUENZA LIKE ILLNESS [None]
  - BODY TEMPERATURE INCREASED [None]
  - NUCHAL RIGIDITY [None]
